FAERS Safety Report 14738028 (Version 1)
Quarter: 2018Q2

REPORT INFORMATION
  Report Type: Spontaneous
  Country: KR (occurrence: KR)
  Receive Date: 20180409
  Receipt Date: 20180409
  Transmission Date: 20180711
  Serious: Yes (Other)
  Sender: FDA-Public Use
  Company Number: KR-PFIZER INC-2018140149

PATIENT

DRUGS (1)
  1. XALATAN [Suspect]
     Active Substance: LATANOPROST
     Dosage: UNK
     Route: 031

REACTIONS (5)
  - Angina pectoris [Unknown]
  - Skin necrosis [Unknown]
  - Arrhythmia [Unknown]
  - Blood pressure decreased [Unknown]
  - Dysuria [Unknown]
